FAERS Safety Report 5941543-9 (Version None)
Quarter: 2008Q4

REPORT INFORMATION
  Report Type: 
  Country: None (occurrence: None)
  Receive Date: 20081104
  Receipt Date: 20081104
  Transmission Date: 20090506
  Serious: Yes (Other)
  Sender: FDA-Public Use
  Company Number: None

PATIENT
  Age: 48 Year
  Sex: Female
  Weight: 54.4316 kg

DRUGS (1)
  1. CYMBALTA [Suspect]
     Indication: DEPRESSION
     Dosage: .5 60 MG CAPSULE ONCE PO
     Route: 048
     Dates: start: 20081031, end: 20081031

REACTIONS (2)
  - HYPERSOMNIA [None]
  - VOMITING [None]
